FAERS Safety Report 9705306 (Version 1)
Quarter: 2013Q4

REPORT INFORMATION
  Report Type: Spontaneous
  Country: BG (occurrence: BG)
  Receive Date: 20131122
  Receipt Date: 20131122
  Transmission Date: 20140711
  Serious: Yes (Hospitalization)
  Sender: FDA-Public Use
  Company Number: BG-ALLERGAN-1317931US

PATIENT
  Age: 5 Month
  Sex: Female

DRUGS (2)
  1. BRIMONIDINE UNK [Suspect]
     Indication: DEVELOPMENTAL GLAUCOMA
     Route: 047
  2. BRINZOLAMIDE [Suspect]
     Indication: DEVELOPMENTAL GLAUCOMA
     Route: 047

REACTIONS (9)
  - Toxicity to various agents [Recovered/Resolved]
  - Depressed level of consciousness [Recovered/Resolved]
  - Cardiogenic shock [Recovered/Resolved]
  - Hypotonia [Recovered/Resolved]
  - Hypothermia [Recovered/Resolved]
  - Bradycardia [Recovered/Resolved]
  - Apnoea [Recovered/Resolved]
  - Lethargy [Recovered/Resolved]
  - Off label use [Recovered/Resolved]
